FAERS Safety Report 15180418 (Version 1)
Quarter: 2018Q3

REPORT INFORMATION
  Report Type: Spontaneous
  Country: US (occurrence: US)
  Receive Date: 20180723
  Receipt Date: 20180723
  Transmission Date: 20181010
  Serious: No
  Sender: FDA-Public Use
  Company Number: US-BAYER-2018-137970

PATIENT
  Age: 65 Year
  Sex: Male
  Weight: 85.99 kg

DRUGS (2)
  1. MIRALAX [Suspect]
     Active Substance: POLYETHYLENE GLYCOL 3350
     Indication: COLONOSCOPY
     Dosage: 255 G WITH A 2 LITER BOTTLE OF GATORADE DOSE
     Route: 048
     Dates: start: 20180718, end: 20180718
  2. DULCOLAX (BISACODYL) [Concomitant]
     Active Substance: BISACODYL
     Dosage: 4 DF, UNK

REACTIONS (5)
  - Incorrect dosage administered [Unknown]
  - Off label use [Unknown]
  - Vomiting [Recovered/Resolved]
  - Product use in unapproved indication [Unknown]
  - Drug administration error [Unknown]

NARRATIVE: CASE EVENT DATE: 20180718
